FAERS Safety Report 16759025 (Version 1)
Quarter: 2019Q3

REPORT INFORMATION
  Report Type: Spontaneous
  Country: US (occurrence: US)
  Receive Date: 20190830
  Receipt Date: 20190830
  Transmission Date: 20191005
  Serious: No
  Sender: FDA-Public Use
  Company Number: US-CELGENEUS-USA-20190807753

PATIENT
  Sex: Female
  Weight: 66 kg

DRUGS (1)
  1. APREMILAST [Suspect]
     Active Substance: APREMILAST
     Indication: PSORIASIS
     Dosage: STARTER PACK
     Route: 048
     Dates: start: 201908, end: 201908

REACTIONS (5)
  - Thirst [Recovered/Resolved]
  - Dehydration [Recovered/Resolved]
  - Nervousness [Recovered/Resolved]
  - Migraine [Recovered/Resolved]
  - Anxiety [Recovered/Resolved]

NARRATIVE: CASE EVENT DATE: 2019
